FAERS Safety Report 5908599-0 (Version None)
Quarter: 2008Q4

REPORT INFORMATION
  Report Type: 
  Country: None (occurrence: None)
  Receive Date: 20081001
  Receipt Date: 20080821
  Transmission Date: 20090506
  Serious: No
  Sender: FDA-Public Use
  Company Number: TPA2008A01340

PATIENT
  Age: 77 Year
  Sex: Male
  Weight: 68.0396 kg

DRUGS (7)
  1. ROZEREM [Suspect]
     Indication: INITIAL INSOMNIA
     Dosage: 8 MG, HS, PER ORAL; 3/4 MG, HS, PER ORAL
     Route: 048
     Dates: start: 20080819, end: 20080820
  2. ROZEREM [Suspect]
     Indication: MIDDLE INSOMNIA
     Dosage: 8 MG, HS, PER ORAL; 3/4 MG, HS, PER ORAL
     Route: 048
     Dates: start: 20080819, end: 20080820
  3. ROZEREM [Suspect]
     Indication: INITIAL INSOMNIA
     Dosage: 8 MG, HS, PER ORAL; 3/4 MG, HS, PER ORAL
     Route: 048
     Dates: start: 20080820, end: 20080821
  4. ROZEREM [Suspect]
     Indication: MIDDLE INSOMNIA
     Dosage: 8 MG, HS, PER ORAL; 3/4 MG, HS, PER ORAL
     Route: 048
     Dates: start: 20080820, end: 20080821
  5. SINEMET CR [Concomitant]
  6. REQUIP [Concomitant]
  7. UNKNOWN PARKINSONS MEDICATION (ALL OTHER THERAPEUTIC PRODUCTS) [Concomitant]

REACTIONS (7)
  - DIZZINESS [None]
  - FATIGUE [None]
  - HEADACHE [None]
  - INCORRECT DOSE ADMINISTERED [None]
  - NAUSEA [None]
  - POLLAKIURIA [None]
  - SOMNOLENCE [None]
